FAERS Safety Report 4351429-1 (Version None)
Quarter: 2004Q2

REPORT INFORMATION
  Report Type: 
  Country: None (occurrence: None)
  Receive Date: 20040503
  Receipt Date: 20040423
  Transmission Date: 20050107
  Serious: Yes (Other)
  Sender: FDA-Public Use
  Company Number: US-BRISTOL-MYERS SQUIBB COMPANY-12568820

PATIENT

DRUGS (3)
  1. ETOPOSIDE [Suspect]
     Indication: MULTIPLE MYELOMA
     Route: 042
  2. CYCLOPHOSPHAMIDE [Suspect]
     Indication: MULTIPLE MYELOMA
     Route: 042
  3. IDARUBICIN HCL [Suspect]
     Indication: MULTIPLE MYELOMA
     Route: 042

REACTIONS (1)
  - TUMOUR LYSIS SYNDROME [None]
